FAERS Safety Report 10081553 (Version 1)
Quarter: 2014Q2

REPORT INFORMATION
  Report Type: Spontaneous
  Country: US (occurrence: None)
  Receive Date: 20140415
  Receipt Date: 20140415
  Transmission Date: 20141212
  Serious: Yes (Hospitalization)
  Sender: FDA-Public Use
  Company Number: None

PATIENT
  Age: 81 Year
  Sex: Male
  Weight: 65.9 kg

DRUGS (3)
  1. AMBIEN 10MG [Suspect]
  2. PLAVIX [Suspect]
  3. SOTALOL [Suspect]

REACTIONS (4)
  - Fall [None]
  - Memory impairment [None]
  - Intervertebral disc protrusion [None]
  - Somnambulism [None]
